FAERS Safety Report 5904874-4 (Version None)
Quarter: 2008Q4

REPORT INFORMATION
  Report Type: 
  Country: None (occurrence: None)
  Receive Date: 20081001
  Receipt Date: 20080926
  Transmission Date: 20090506
  Serious: Yes (Other)
  Sender: FDA-Public Use
  Company Number: A0749454A

PATIENT
  Age: 67 Year
  Sex: Female

DRUGS (5)
  1. ADVAIR DISKUS 100/50 [Suspect]
     Indication: ASTHMA
     Dosage: 1PUFF TWICE PER DAY
     Route: 055
     Dates: start: 20010101
  2. ADVAIR DISKUS 100/50 [Suspect]
     Dosage: 2PUFF TWICE PER DAY
     Route: 055
  3. SEREVENT [Suspect]
     Indication: ASTHMA
     Route: 055
     Dates: start: 20080901
  4. ALBUTEROL [Concomitant]
  5. COMBIVENT [Concomitant]

REACTIONS (1)
  - ANGLE CLOSURE GLAUCOMA [None]
